FAERS Safety Report 16373516 (Version 2)
Quarter: 2019Q4

REPORT INFORMATION
  Report Type: Spontaneous
  Country: US (occurrence: US)
  Receive Date: 20190530
  Receipt Date: 20191028
  Transmission Date: 20200122
  Serious: No
  Sender: FDA-Public Use
  Company Number: US-SA-2019SA144546

PATIENT
  Sex: Female

DRUGS (15)
  1. BOTOX [Concomitant]
     Active Substance: ONABOTULINUMTOXINA
  2. DUPIXENT [Suspect]
     Active Substance: DUPILUMAB
     Dosage: 300 MG, QOW
     Route: 058
  3. TRAZODONE [Concomitant]
     Active Substance: TRAZODONE HYDROCHLORIDE
  4. FAMOTIDINE. [Concomitant]
     Active Substance: FAMOTIDINE
  5. TRIAMCINOLONE ACETONIDE. [Suspect]
     Active Substance: TRIAMCINOLONE ACETONIDE
     Dosage: UNK
     Dates: start: 2019
  6. ALPRAZOLAM. [Concomitant]
     Active Substance: ALPRAZOLAM
  7. KETOROLAC TROMETHAMINE. [Concomitant]
     Active Substance: KETOROLAC TROMETHAMINE
  8. ATORVASTATIN CALCIUM. [Concomitant]
     Active Substance: ATORVASTATIN CALCIUM
  9. LINZESS [Concomitant]
     Active Substance: LINACLOTIDE
  10. TOPROL XL [Concomitant]
     Active Substance: METOPROLOL SUCCINATE
  11. DUPIXENT [Suspect]
     Active Substance: DUPILUMAB
     Indication: DERMATITIS ATOPIC
     Dosage: 300 MG, QOW
     Dates: start: 20181001
  12. DULOXETINE HCL [Concomitant]
     Active Substance: DULOXETINE HYDROCHLORIDE
  13. IMITREX [Concomitant]
     Active Substance: SUMATRIPTAN SUCCINATE
  14. SUMATRIPTAN SUCCINATE. [Concomitant]
     Active Substance: SUMATRIPTAN SUCCINATE
  15. OLMESARTAN MEDOXOMILO + HIDROCLOROTIAZIDA [Concomitant]

REACTIONS (8)
  - Ocular hyperaemia [Unknown]
  - Therapeutic response decreased [Unknown]
  - Erythema [Unknown]
  - Rash erythematous [Unknown]
  - Rebound eczema [Unknown]
  - Pruritus [Unknown]
  - Dry skin [Unknown]
  - Product dose omission [Unknown]
